FAERS Safety Report 8765275 (Version 4)
Quarter: 2013Q4

REPORT INFORMATION
  Report Type: Spontaneous
  Country: US (occurrence: US)
  Receive Date: 20120831
  Receipt Date: 20131113
  Transmission Date: 20140711
  Serious: Yes (Death, Life-Threatening, Hospitalization, Other)
  Sender: FDA-Public Use
  Company Number: US-B.I. PHARMACEUTICALS,INC./RIDGEFIELD-2012-BP-21279BP

PATIENT
  Age: 66 Year
  Sex: Female
  Weight: 56.7 kg

DRUGS (19)
  1. PRADAXA [Suspect]
     Indication: ATRIAL FIBRILLATION
     Dosage: 300 MG
     Dates: start: 201111, end: 20120222
  2. HEPARIN [Suspect]
     Indication: ANTICOAGULANT THERAPY
     Route: 042
     Dates: start: 20120222, end: 20120229
  3. IBUPROFEN [Concomitant]
  4. CLARITIN [Concomitant]
  5. SINGULAIR [Concomitant]
     Dosage: 10 MG
     Dates: start: 201102
  6. PREDNISONE [Concomitant]
     Dosage: 5 MG
     Dates: start: 201101
  7. LEFLUNOMIDE [Concomitant]
     Dosage: 20 MG
  8. MELOXICAM [Concomitant]
     Dosage: 15 MG
  9. CITALOPRAM [Concomitant]
     Dosage: 40 MG
  10. SYMBICORT [Concomitant]
     Dosage: 4 PUF
  11. PACERONE [Concomitant]
     Dosage: 400 MG
  12. CARDIZEM CD [Concomitant]
     Indication: HYPERTENSION
     Dosage: 30 MG
  13. HYDROCHLOROTHIAZIDE [Concomitant]
     Indication: HYPERTENSION
     Dates: start: 201101, end: 201202
  14. HYDRALAZINE [Concomitant]
     Indication: HYPERTENSION
     Dosage: 25 MG
  15. ALBUTEROL [Concomitant]
  16. ORENCIA [Concomitant]
     Dates: start: 201112
  17. AMLODIPINE [Concomitant]
     Dates: start: 201101
  18. BISOPR/HCTZ [Concomitant]
     Dates: start: 201101
  19. SPIRIVA HANDIHALER [Concomitant]
     Dosage: 18 MCG
     Route: 055

REACTIONS (10)
  - Multi-organ failure [Fatal]
  - Cardio-respiratory arrest [Unknown]
  - Bronchiolitis [Unknown]
  - Arterial haemorrhage [Recovered/Resolved]
  - Retroperitoneal haematoma [Unknown]
  - Coagulopathy [Recovered/Resolved]
  - Haemorrhagic anaemia [Unknown]
  - Thrombocytopenia [Unknown]
  - Hypovolaemic shock [Unknown]
  - Haemoptysis [Unknown]
